FAERS Safety Report 10047885 (Version 1)
Quarter: 2014Q1

REPORT INFORMATION
  Report Type: Report from Study
  Country: US (occurrence: US)
  Receive Date: 20140331
  Receipt Date: 20140331
  Transmission Date: 20141002
  Serious: Yes (Other)
  Sender: FDA-Public Use
  Company Number: US-BAXTER-2014BAX015215

PATIENT
  Age: 57 Year
  Sex: Female
  Weight: 77.11 kg

DRUGS (6)
  1. GAMMAGARD LIQUID [Suspect]
     Indication: IMMUNODEFICIENCY COMMON VARIABLE
     Dosage: 25-40 GRAMS
     Route: 042
     Dates: start: 20110112, end: 20110603
  2. PRIVIGEN [Suspect]
     Indication: IMMUNODEFICIENCY COMMON VARIABLE
     Route: 042
     Dates: start: 20110707
  3. VERAPAMIL [Concomitant]
     Indication: HYPERTENSION
     Dosage: 240 XL
     Route: 048
     Dates: start: 2004
  4. VERAPAMIL [Concomitant]
     Indication: SUPRAVENTRICULAR TACHYCARDIA
  5. HCTZ [Concomitant]
     Indication: HYPERTENSION
     Route: 048
     Dates: start: 2004
  6. WELLBUTRIN [Concomitant]
     Indication: ATTENTION DEFICIT/HYPERACTIVITY DISORDER
     Dosage: XL
     Route: 048
     Dates: start: 20110804

REACTIONS (14)
  - Chest pain [Recovered/Resolved]
  - Dyspnoea [Recovered/Resolved]
  - Thyroiditis subacute [Recovered/Resolved]
  - Skin discolouration [Unknown]
  - Type 2 diabetes mellitus [Not Recovered/Not Resolved]
  - Pleural effusion [Recovered/Resolved]
  - Pericardial effusion [Recovered/Resolved]
  - Hand fracture [Recovering/Resolving]
  - Wrist fracture [Recovering/Resolving]
  - Rash [Recovered/Resolved]
  - Migraine [Recovered/Resolved]
  - Pyrexia [Recovered/Resolved]
  - Fall [Unknown]
  - Bone pain [Not Recovered/Not Resolved]
